FAERS Safety Report 9063522 (Version 1)
Quarter: 2013Q1

REPORT INFORMATION
  Report Type: Report from Study
  Country: US (occurrence: US)
  Receive Date: 20130131
  Receipt Date: 20130131
  Transmission Date: 20140127
  Serious: No
  Sender: FDA-Public Use
  Company Number: US-ABBOTT-12P-163-1000483-00

PATIENT
  Age: 74 Year
  Sex: Female

DRUGS (13)
  1. HUMIRA [Suspect]
     Indication: CROHN^S DISEASE
     Dosage: LOADING DOSE
     Dates: start: 20121022, end: 20121022
  2. HUMIRA [Suspect]
     Dates: start: 20121213
  3. PREDNISONE [Concomitant]
     Indication: PRODUCT USED FOR UNKNOWN INDICATION
     Dosage: DAILY
  4. PREDNISONE [Concomitant]
  5. PENTASA [Concomitant]
     Indication: CROHN^S DISEASE
     Dosage: 4-500MG
  6. OMEPRAZOLE [Concomitant]
     Indication: PRODUCT USED FOR UNKNOWN INDICATION
  7. TRAZODONE [Concomitant]
     Indication: INSOMNIA
     Dosage: ONE AT BEDTIME
  8. CYMBALTA [Concomitant]
     Indication: PAIN
  9. VITAMIN B [Concomitant]
     Indication: PRODUCT USED FOR UNKNOWN INDICATION
  10. VITAMIN D [Concomitant]
     Indication: PRODUCT USED FOR UNKNOWN INDICATION
     Dosage: DAILY
  11. CALCIUM [Concomitant]
     Indication: PRODUCT USED FOR UNKNOWN INDICATION
     Dosage: DAILY
  12. MULTIVITAMIN [Concomitant]
     Indication: PRODUCT USED FOR UNKNOWN INDICATION
  13. VICODIN [Concomitant]
     Indication: PAIN
     Dosage: 7.5/3.25MG

REACTIONS (5)
  - Pain in extremity [Recovering/Resolving]
  - Pain [Recovering/Resolving]
  - Fall [Not Recovered/Not Resolved]
  - Excoriation [Recovered/Resolved]
  - Back pain [Recovering/Resolving]
